FAERS Safety Report 12265395 (Version 1)
Quarter: 2016Q2

REPORT INFORMATION
  Report Type: Not Available
  Country: US (occurrence: US)
  Receive Date: 20160413
  Receipt Date: 20160413
  Transmission Date: 20160815
  Serious: No
  Sender: FDA-Public Use
  Company Number: US-HISAMITSU-2016-US-000291

PATIENT
  Age: 65 Year
  Sex: Female
  Weight: 56.7 kg

DRUGS (1)
  1. SALONPAS PAIN RELIEF [Suspect]
     Active Substance: MENTHOL\METHYL SALICYLATE
     Dosage: 1 PATCH
     Route: 061
     Dates: start: 20160118, end: 20160118

REACTIONS (1)
  - Drug ineffective [Unknown]

NARRATIVE: CASE EVENT DATE: 20160118
